FAERS Safety Report 15539108 (Version 1)
Quarter: 2018Q4

REPORT INFORMATION
  Report Type: Spontaneous
  Country: IT (occurrence: IT)
  Receive Date: 20181022
  Receipt Date: 20181022
  Transmission Date: 20190205
  Serious: Yes (Death, Hospitalization)
  Sender: FDA-Public Use
  Company Number: PHHY2017IT166445

PATIENT
  Age: 67 Year
  Sex: Female

DRUGS (16)
  1. ZYLORIC [Concomitant]
     Active Substance: ALLOPURINOL
     Indication: PRODUCT USED FOR UNKNOWN INDICATION
     Dosage: UNK
     Route: 065
     Dates: start: 20150326
  2. MOMELOTINIB [Suspect]
     Active Substance: MOMELOTINIB
     Dosage: 150 MG, QD
     Route: 048
     Dates: start: 20170829, end: 20171127
  3. LANSOPRAZOLE. [Concomitant]
     Active Substance: LANSOPRAZOLE
     Indication: PRODUCT USED FOR UNKNOWN INDICATION
     Dosage: UNK
     Route: 065
     Dates: start: 20151001
  4. FOLINA [Concomitant]
     Active Substance: FOLIC ACID
     Indication: PRODUCT USED FOR UNKNOWN INDICATION
     Dosage: UNK
     Route: 065
     Dates: start: 20160609
  5. PREDNISON [Concomitant]
     Active Substance: PREDNISONE
     Indication: PRODUCT USED FOR UNKNOWN INDICATION
     Dosage: UNK
     Route: 065
     Dates: start: 20170810
  6. URSODEOXYCHOLIC ACID [Concomitant]
     Active Substance: URSODIOL
     Indication: PRODUCT USED FOR UNKNOWN INDICATION
     Dosage: UNK
     Route: 065
     Dates: start: 20160515
  7. CALCIUM ACETATE. [Concomitant]
     Active Substance: CALCIUM ACETATE
     Indication: PRODUCT USED FOR UNKNOWN INDICATION
     Dosage: UNK
     Route: 065
     Dates: start: 20161017
  8. EXJADE [Suspect]
     Active Substance: DEFERASIROX
     Indication: HYPERFERRITINAEMIA
     Dosage: 750 MG, QD
     Route: 048
     Dates: start: 20171001, end: 20171012
  9. CALCITRIOL. [Concomitant]
     Active Substance: CALCITRIOL
     Indication: PRODUCT USED FOR UNKNOWN INDICATION
     Dosage: UNK
     Route: 065
     Dates: start: 20161017
  10. MOMELOTINIB [Suspect]
     Active Substance: MOMELOTINIB
     Indication: MYELOFIBROSIS
     Dosage: 200 MG, QD
     Route: 048
     Dates: start: 20151001, end: 20170802
  11. MOMELOTINIB [Suspect]
     Active Substance: MOMELOTINIB
     Dosage: 100 MG, QD
     Route: 048
     Dates: start: 20170803, end: 20170809
  12. MOMELOTINIB [Suspect]
     Active Substance: MOMELOTINIB
     Dosage: 100 MG, QD
     Route: 048
     Dates: start: 20171128, end: 20171204
  13. DOBETIN [Concomitant]
     Indication: PRODUCT USED FOR UNKNOWN INDICATION
     Dosage: UNK
     Route: 065
     Dates: start: 2013
  14. EXJADE [Suspect]
     Active Substance: DEFERASIROX
     Dosage: UNK
     Route: 065
     Dates: end: 20171017
  15. TIROSINT [Concomitant]
     Active Substance: LEVOTHYROXINE SODIUM
     Indication: PRODUCT USED FOR UNKNOWN INDICATION
     Dosage: UNK
     Route: 065
     Dates: start: 20170119
  16. LIOTIR [Concomitant]
     Indication: PRODUCT USED FOR UNKNOWN INDICATION
     Dosage: UNK
     Route: 065
     Dates: start: 20170607

REACTIONS (2)
  - Erythema multiforme [Recovered/Resolved]
  - Death [Fatal]

NARRATIVE: CASE EVENT DATE: 20171012
